FAERS Safety Report 8998962 (Version 3)
Quarter: 2013Q2

REPORT INFORMATION
  Report Type: Spontaneous
  Country: US (occurrence: US)
  Receive Date: 20130103
  Receipt Date: 20130524
  Transmission Date: 20140414
  Serious: No
  Sender: FDA-Public Use
  Company Number: US-PFIZER INC-2012330810

PATIENT
  Age: 57 Year
  Sex: Male
  Weight: 66.21 kg

DRUGS (13)
  1. SUTENT [Suspect]
     Indication: METASTATIC RENAL CELL CARCINOMA
     Dosage: 50 MG, CYCLE 1 (42 DAYS CYCLE)
     Dates: start: 20120713
  2. SUTENT [Suspect]
     Dosage: 50 MG, FROM CYCLE 2: 2 WEEKS ON, 1 WEEK OFF
  3. SUTENT [Suspect]
     Dosage: UNK
     Dates: end: 20130505
  4. GLUCOSAMINE [Concomitant]
     Dosage: UNK
  5. SIMVASTATIN [Concomitant]
     Dosage: UNK
  6. M.V.I. [Concomitant]
     Dosage: UNK
  7. TESSALON PERLE [Concomitant]
     Dosage: UNK
  8. AMBIEN [Concomitant]
     Dosage: UNK
  9. IRON [Concomitant]
     Dosage: UNK
  10. INDOCIN [Concomitant]
     Dosage: UNK
  11. FISH OIL [Concomitant]
     Dosage: UNK
  12. LOPERAMIDE HYDROCHLORIDE [Concomitant]
     Dosage: UNK
  13. ADVAIR [Concomitant]
     Dosage: UNK

REACTIONS (18)
  - Pleurisy [Unknown]
  - Hypermetabolism [Unknown]
  - Heart rate increased [Unknown]
  - Pyrexia [Unknown]
  - Weight decreased [Unknown]
  - Anaemia [Unknown]
  - Epistaxis [Unknown]
  - Myalgia [Unknown]
  - Oral pain [Unknown]
  - Blister [Unknown]
  - Palmar-plantar erythrodysaesthesia syndrome [Unknown]
  - Diarrhoea [Unknown]
  - Flatulence [Unknown]
  - Fatigue [Unknown]
  - Hair colour changes [Unknown]
  - Sleep disorder [Unknown]
  - Hair texture abnormal [Unknown]
  - Viral upper respiratory tract infection [Recovering/Resolving]
